FAERS Safety Report 7722846-4 (Version None)
Quarter: 2011Q3

REPORT INFORMATION
  Report Type: 
  Country: None (occurrence: None)
  Receive Date: 20110901
  Receipt Date: 20110823
  Transmission Date: 20111222
  Serious: No
  Sender: FDA-Public Use
  Company Number: US-BIOGENIDEC-2011BI031691

PATIENT
  Age: 43 Year
  Sex: Male

DRUGS (1)
  1. TYSABRI [Suspect]
     Indication: MULTIPLE SCLEROSIS
     Route: 042
     Dates: start: 20100429, end: 20110623

REACTIONS (7)
  - PAIN [None]
  - HYPOAESTHESIA [None]
  - BALANCE DISORDER [None]
  - ASTHENIA [None]
  - FEELING ABNORMAL [None]
  - GENERAL SYMPTOM [None]
  - VISION BLURRED [None]
